FAERS Safety Report 17903404 (Version 1)
Quarter: 2020Q2

REPORT INFORMATION
  Report Type: Spontaneous
  Country: IL (occurrence: IL)
  Receive Date: 20200617
  Receipt Date: 20200617
  Transmission Date: 20200714
  Serious: Yes (Other)
  Sender: FDA-Public Use
  Company Number: IL-009507513-2006ISR005079

PATIENT
  Age: 62 Year

DRUGS (3)
  1. KEYTRUDA [Suspect]
     Active Substance: PEMBROLIZUMAB
     Dosage: UNK
     Dates: start: 201809
  2. CARBOPLATIN. [Suspect]
     Active Substance: CARBOPLATIN
     Dosage: UNK
     Dates: start: 201809
  3. TAXOL [Suspect]
     Active Substance: PACLITAXEL
     Dosage: UNK
     Dates: start: 201809

REACTIONS (3)
  - Malignant neoplasm progression [Unknown]
  - Squamous cell carcinoma [Unknown]
  - Pulmonary mass [Unknown]

NARRATIVE: CASE EVENT DATE: 201907
